FAERS Safety Report 5648128-2 (Version None)
Quarter: 2008Q1

REPORT INFORMATION
  Report Type: 
  Country: None (occurrence: None)
  Receive Date: 20080304
  Receipt Date: 20080225
  Transmission Date: 20080703
  Serious: Yes (Other)
  Sender: FDA-Public Use
  Company Number: US-JNJFOC-20080206062

PATIENT
  Sex: Female

DRUGS (2)
  1. SIMPLY SLEEP NIGHTTIME [Suspect]
     Indication: INTENTIONAL DRUG MISUSE
     Route: 048
  2. ALCOHOL [Suspect]
     Indication: DRUG USE FOR UNKNOWN INDICATION

REACTIONS (3)
  - ALCOHOL INTERACTION [None]
  - DRUG ABUSE [None]
  - DYSARTHRIA [None]
